FAERS Safety Report 7793472 (Version 5)
Quarter: 2013Q3

REPORT INFORMATION
  Report Type: Report from Study
  Country: FR (occurrence: FR)
  Receive Date: 20110131
  Receipt Date: 20130712
  Transmission Date: 20140515
  Serious: Yes (Death)
  Sender: FDA-Public Use
  Company Number: FR-ABBOTT-11P-056-0700859-00

PATIENT
  Age: 44 Year
  Sex: Male
  Weight: 72 kg

DRUGS (6)
  1. KALETRA TABLETS [Suspect]
     Indication: HIV INFECTION
     Route: 048
     Dates: start: 20101028, end: 20110126
  2. IMODIUM [Concomitant]
     Indication: DIARRHOEA
     Dates: start: 20101028, end: 20110126
  3. ARESTAL [Concomitant]
     Indication: DIARRHOEA
     Dates: start: 20101202, end: 20110126
  4. THERALENE [Concomitant]
     Indication: INSOMNIA
     Route: 048
     Dates: start: 20100929, end: 20110126
  5. NOCTAMIDE [Concomitant]
     Indication: INSOMNIA
     Dates: start: 20100608, end: 20110126
  6. ZELITREX [Concomitant]
     Indication: HERPES VIRUS INFECTION
     Dates: start: 20060106, end: 20110126

REACTIONS (2)
  - Intentional overdose [Fatal]
  - Cardiac failure [Fatal]
